FAERS Safety Report 24428363 (Version 1)
Quarter: 2024Q4

REPORT INFORMATION
  Report Type: Spontaneous
  Country: US (occurrence: US)
  Receive Date: 20241011
  Receipt Date: 20241011
  Transmission Date: 20250115
  Serious: Yes (Hospitalization, Other)
  Sender: RECORDATI
  Company Number: US-ORPHANEU-2024007854

PATIENT

DRUGS (22)
  1. ISTURISA [Suspect]
     Active Substance: OSILODROSTAT PHOSPHATE
     Indication: Cushing^s syndrome
     Dosage: 1 MG, QD
     Route: 048
     Dates: end: 2024
  2. ISTURISA [Suspect]
     Active Substance: OSILODROSTAT PHOSPHATE
     Dosage: 1 MG, QD
     Route: 048
     Dates: start: 2024
  3. ACETAMINOPHEN [Concomitant]
     Active Substance: ACETAMINOPHEN
     Indication: Product used for unknown indication
     Dosage: 500 MG, PRN (L TABLET 500 MG)
     Route: 048
     Dates: start: 20220802
  4. ASPIRIN [Concomitant]
     Active Substance: ASPIRIN
     Indication: Product used for unknown indication
     Dosage: 81 MG DAILY (LOW DOSE ORAL TABLET DEL)
     Route: 048
     Dates: start: 20220802
  5. VITAMIN B COMPLEX [Concomitant]
     Active Substance: CYANOCOBALAMIN\DEXPANTHENOL\NIACINAMIDE\PYRIDOXINE HYDROCHLORIDE\RIBOFLAVIN 5^-PHOSPHATE SODIUM\THIA
     Indication: Product used for unknown indication
     Dosage: 1 CAPSULE DAILY (VITAMINS)
     Route: 048
     Dates: start: 20240815
  6. Beet root [Concomitant]
     Indication: Product used for unknown indication
     Dosage: 500 MG, QD (AT AFTERNOON)
     Route: 048
     Dates: start: 20230515
  7. BIOTIN [Concomitant]
     Active Substance: BIOTIN
     Indication: Product used for unknown indication
     Dosage: 5000 MICROGRAM, QD AT AFTERNOON (QPM) (1000 MICROGRAM CHEWABLE TABLET)
     Route: 048
     Dates: start: 20220802
  8. CARVEDILOL [Concomitant]
     Active Substance: CARVEDILOL
     Indication: Product used for unknown indication
     Dosage: 25 MG, BID (25 MG TABLET)
     Route: 048
     Dates: start: 20240809
  9. COENZYME Q10 [Concomitant]
     Active Substance: DIETARY SUPPLEMENT\UBIDECARENONE
     Indication: Product used for unknown indication
     Dosage: CAPSULE 200 MG DAILY
     Route: 048
     Dates: start: 20220802
  10. ELIQUIS [Concomitant]
     Active Substance: APIXABAN
     Indication: Product used for unknown indication
     Dosage: 5 MILLIGRAM, BID (5 MG TABLET)
     Route: 048
     Dates: start: 20220802
  11. EZFE [Concomitant]
     Indication: Product used for unknown indication
     Dosage: 434.8 (200 FE) CAPSULE DAILY
     Route: 048
     Dates: start: 20220802
  12. FUROSEMIDE [Concomitant]
     Active Substance: FUROSEMIDE
     Indication: Product used for unknown indication
     Dosage: 10 MG DAILY (20 MG TABLET)
     Route: 048
     Dates: start: 20220802
  13. HYDROCHLOROTHIAZIDE [Concomitant]
     Active Substance: HYDROCHLOROTHIAZIDE
     Indication: Product used for unknown indication
     Dosage: 12.5 MG TABLET
     Route: 048
     Dates: start: 20230802
  14. LOSARTAN POTASSIUM [Concomitant]
     Active Substance: LOSARTAN POTASSIUM
     Indication: Product used for unknown indication
     Dosage: 50 MG TABLET
     Route: 048
     Dates: start: 20220802
  15. OMEPRAZOLE [Concomitant]
     Active Substance: OMEPRAZOLE
     Indication: Product used for unknown indication
     Dosage: 20 MG, PRN (TABLET DELAYED RELEASE)
     Route: 048
     Dates: start: 20220802
  16. MINERALS\VITAMINS [Concomitant]
     Active Substance: MINERALS\VITAMINS
     Indication: Product used for unknown indication
     Dosage: 1 DOSAGE FORM (TABLET), BID
     Route: 048
     Dates: start: 20220802
  17. SENNA [Concomitant]
     Active Substance: SENNA LEAF\SENNOSIDES\SENNOSIDES A AND B
     Indication: Product used for unknown indication
     Dosage: 17.2 MG, QD AT BED TIME (8.6 MG TABLET )
     Route: 048
     Dates: start: 20240815
  18. SPIRONOLACTONE [Concomitant]
     Active Substance: SPIRONOLACTONE
     Indication: Product used for unknown indication
     Dosage: 12.5 MG, QD AT MORNING (TABLET 25MG)
     Route: 048
     Dates: start: 20230802
  19. TIZANIDINE HYDROCHLORIDE [Concomitant]
     Active Substance: TIZANIDINE HYDROCHLORIDE
     Indication: Product used for unknown indication
     Dosage: 4 MG CAPSULE, PRN
     Route: 048
     Dates: start: 20220802
  20. VITAMIN C [Concomitant]
     Active Substance: ASCORBIC ACID
     Indication: Product used for unknown indication
     Dosage: 500 MG, QD AT AFTERNOON (250 MG CHEWABLE TABLET)
     Route: 048
     Dates: start: 20220802
  21. VITAMIN D3 [Concomitant]
     Active Substance: CHOLECALCIFEROL
     Indication: Product used for unknown indication
     Dosage: 1.25 MG DAILY (CAPUSLE 1.25 MG)
     Route: 048
     Dates: start: 20220802
  22. HYDRALAZINE HCL [Concomitant]
     Active Substance: HYDRALAZINE HYDROCHLORIDE
     Indication: Product used for unknown indication
     Dosage: 10 MILLIGRAM, BID (10MG TABLET)
     Route: 048
     Dates: start: 20230802

REACTIONS (4)
  - Haematoma [Recovered/Resolved]
  - Angioplasty [Recovered/Resolved]
  - Hypertension [Recovered/Resolved]
  - Pain [Recovered/Resolved]

NARRATIVE: CASE EVENT DATE: 20240930
